FAERS Safety Report 20854674 (Version 1)
Quarter: 2022Q2

REPORT INFORMATION
  Report Type: Spontaneous
  Country: LT (occurrence: LT)
  Receive Date: 20220520
  Receipt Date: 20220520
  Transmission Date: 20220721
  Serious: Yes (Hospitalization)
  Sender: FDA-Public Use
  Company Number: LT-TEVA-2022-LT-2037937

PATIENT
  Age: 27 Year
  Sex: Female

DRUGS (1)
  1. AJOVY [Suspect]
     Active Substance: FREMANEZUMAB-VFRM
     Indication: Migraine
     Dosage: TOTALLY 5 DOSES, MONTHLY BASIS (ON 7-10TH DAYS OF THE MONTH
     Route: 065
     Dates: start: 202112, end: 20220407

REACTIONS (9)
  - Fall [Recovered/Resolved]
  - Nausea [Recovered/Resolved]
  - Vomiting [Recovered/Resolved]
  - Dizziness [Recovered/Resolved]
  - Loss of consciousness [Recovered/Resolved]
  - Pyrexia [Recovered/Resolved]
  - Maternal exposure during pregnancy [Unknown]
  - Bloody discharge [Unknown]
  - Migraine with aura [Recovered/Resolved]

NARRATIVE: CASE EVENT DATE: 20220206
